FAERS Safety Report 23207917 (Version 2)
Quarter: 2023Q4

REPORT INFORMATION
  Report Type: Report from Study
  Country: BE (occurrence: BE)
  Receive Date: 20231121
  Receipt Date: 20231121
  Transmission Date: 20240109
  Serious: Yes (Hospitalization)
  Sender: FDA-Public Use
  Company Number: BE-ABBVIE-5290658

PATIENT
  Sex: Female
  Weight: 54 kg

DRUGS (8)
  1. CARBIDOPA\LEVODOPA [Suspect]
     Active Substance: CARBIDOPA\LEVODOPA
     Indication: Parkinson^s disease
     Dosage: CD: 1.9 ML/H., START DATE: 2023
     Route: 050
     Dates: end: 20230608
  2. CARBIDOPA\LEVODOPA [Suspect]
     Active Substance: CARBIDOPA\LEVODOPA
     Dosage: MD: 1.0 ML, CD: 2.0 ML/H, ED: 1.0 ML DURING 16 HOURS, DOSE INCREASED
     Route: 050
     Dates: start: 20230608, end: 20231023
  3. CARBIDOPA\LEVODOPA [Suspect]
     Active Substance: CARBIDOPA\LEVODOPA
     Route: 050
     Dates: start: 20220928
  4. CARBIDOPA\LEVODOPA [Suspect]
     Active Substance: CARBIDOPA\LEVODOPA
     Dosage: MD: 1.0 ML, CD: 1.4 ML/H, ED: 1.0 ML DURING 16 HOURS
     Route: 050
     Dates: start: 20231023, end: 20231023
  5. CARBIDOPA\LEVODOPA [Suspect]
     Active Substance: CARBIDOPA\LEVODOPA
     Dosage: MD: 1.0 ML, CD: 2.0 ML/H, ED: 1.2 ML DURING 16 HOURS
     Route: 050
     Dates: start: 20231023, end: 20231103
  6. CARBIDOPA\LEVODOPA [Suspect]
     Active Substance: CARBIDOPA\LEVODOPA
     Dosage: MD: 1.0 ML, CD: 2.2 ML/H, ED: 1.2 ML DURING 16 HOURS, DISCONTINUED IN 2023
     Route: 050
     Dates: start: 20231103
  7. BENSERAZIDE\LEVODOPA [Concomitant]
     Active Substance: BENSERAZIDE\LEVODOPA
     Indication: Parkinson^s disease
     Dosage: FORM STRENGTH: 125 MG, FREQUENCY TEXT: AT 21.00
  8. BENSERAZIDE\LEVODOPA [Concomitant]
     Active Substance: BENSERAZIDE\LEVODOPA
     Indication: Parkinson^s disease
     Dosage: TIME INTERVAL: 0.33333333 DAYS: 3/4 TABLET, FORM STRENGTH: 250 MG
     Route: 048

REACTIONS (7)
  - Hip fracture [Unknown]
  - Tremor [Recovering/Resolving]
  - Fall [Unknown]
  - Anxiety [Unknown]
  - Therapeutic product effect incomplete [Unknown]
  - Dyskinesia [Unknown]
  - Stress [Unknown]
